FAERS Safety Report 6638714-5 (Version None)
Quarter: 2010Q1

REPORT INFORMATION
  Report Type: 
  Country: None (occurrence: None)
  Receive Date: 20100317
  Receipt Date: 20100308
  Transmission Date: 20100710
  Serious: Yes (Death, Life-Threatening)
  Sender: FDA-Public Use
  Company Number: JP-BAXTER-2010BH000799

PATIENT
  Age: 72 Year
  Sex: Male

DRUGS (4)
  1. FEIBA VH IMMUNO [Suspect]
     Indication: FACTOR VIII DEFICIENCY
     Route: 042
     Dates: start: 20100105, end: 20100109
  2. FEIBA VH IMMUNO [Suspect]
     Indication: FACTOR VIII INHIBITION
     Route: 042
     Dates: start: 20100105, end: 20100109
  3. FEIBA VH IMMUNO [Suspect]
     Indication: HAEMOSTASIS
     Route: 042
     Dates: start: 20100105, end: 20100109
  4. NOVOSEVEN [Concomitant]
     Indication: HAEMOSTASIS
     Route: 042
     Dates: start: 20091229, end: 20100105

REACTIONS (2)
  - PNEUMONIA [None]
  - RESPIRATORY FAILURE [None]
